FAERS Safety Report 6931094-7 (Version None)
Quarter: 2010Q3

REPORT INFORMATION
  Report Type: 
  Country: None (occurrence: None)
  Receive Date: 20100818
  Receipt Date: 20100809
  Transmission Date: 20110219
  Serious: Yes (Hospitalization)
  Sender: FDA-Public Use
  Company Number: NL-AMGEN-QUU431724

PATIENT
  Sex: Male

DRUGS (6)
  1. ENBREL [Suspect]
     Indication: PRODUCT USED FOR UNKNOWN INDICATION
     Dates: start: 20050330
  2. ENBREL [Suspect]
     Dosage: 50 MG ABOUT ONCE EVERY 3 WEEKS
  3. FLIXOTIDE ROTADISKS [Concomitant]
  4. NASONEX [Concomitant]
  5. PANTOZOL [Concomitant]
  6. AERIUS [Concomitant]

REACTIONS (2)
  - RESPIRATORY DISORDER [None]
  - SINUS DISORDER [None]
